FAERS Safety Report 11718801 (Version 2)
Quarter: 2015Q4

REPORT INFORMATION
  Report Type: Spontaneous
  Country: JP (occurrence: JP)
  Receive Date: 20151110
  Receipt Date: 20151125
  Transmission Date: 20160304
  Serious: Yes (Other)
  Sender: FDA-Public Use
  Company Number: JP-GLAXOSMITHKLINE-JP2015JPN158035

PATIENT
  Age: 72 Year
  Sex: Female

DRUGS (1)
  1. VALTREX [Suspect]
     Active Substance: VALACYCLOVIR HYDROCHLORIDE
     Indication: HERPES ZOSTER
     Dosage: 3000 MG, 1D
     Route: 048

REACTIONS (6)
  - Gait disturbance [Unknown]
  - Encephalopathy [Unknown]
  - Acute kidney injury [Recovering/Resolving]
  - Hallucination, visual [Unknown]
  - Altered state of consciousness [Recovering/Resolving]
  - Delirium [Unknown]
